FAERS Safety Report 10688287 (Version 2)
Quarter: 2015Q1

REPORT INFORMATION
  Report Type: Spontaneous
  Country: US (occurrence: None)
  Receive Date: 20141231
  Receipt Date: 20150109
  Transmission Date: 20150720
  Serious: Yes (Other)
  Sender: FDA-Public Use
  Company Number: 2014VER00364

PATIENT
  Age: 17 Year
  Sex: Female

DRUGS (1)
  1. MYORISAN [Suspect]
     Active Substance: ISOTRETINOIN
     Route: 048
     Dates: start: 2014, end: 2014

REACTIONS (4)
  - Unevaluable event [None]
  - Eczema [None]
  - Nuclear magnetic resonance imaging abnormal [None]
  - Surgery [None]

NARRATIVE: CASE EVENT DATE: 2014
